FAERS Safety Report 7536261-X (Version None)
Quarter: 2011Q2

REPORT INFORMATION
  Report Type: 
  Country: None (occurrence: None)
  Receive Date: 20110609
  Receipt Date: 20110601
  Transmission Date: 20111010
  Serious: Yes (Hospitalization)
  Sender: FDA-Public Use
  Company Number: US-ASTRAZENECA-2011SE33896

PATIENT
  Age: 49 Year
  Sex: Female

DRUGS (1)
  1. SEROQUEL XR [Suspect]
     Route: 048

REACTIONS (8)
  - INTERNAL FIXATION OF SPINE [None]
  - BIPOLAR DISORDER [None]
  - SCHIZOPHRENIA [None]
  - PANIC ATTACK [None]
  - SPINAL OPERATION [None]
  - ASTHMA [None]
  - PSYCHOTIC DISORDER [None]
  - POST-TRAUMATIC STRESS DISORDER [None]
